FAERS Safety Report 19748857 (Version 2)
Quarter: 2022Q2

REPORT INFORMATION
  Report Type: Spontaneous
  Country: GB (occurrence: GB)
  Receive Date: 20210826
  Receipt Date: 20220413
  Transmission Date: 20220720
  Serious: Yes (Hospitalization, Disabling, Other)
  Sender: FDA-Public Use
  Company Number: GB-MHRA-EYC 00258505

PATIENT
  Age: 29 Year
  Sex: Female
  Weight: 44.45 kg

DRUGS (3)
  1. CLARITHROMYCIN [Suspect]
     Active Substance: CLARITHROMYCIN
     Indication: Ill-defined disorder
     Dosage: 500 MILLIGRAM, TWO TIMES A DAY
     Route: 048
     Dates: start: 20200917, end: 20200920
  2. CLARITHROMYCIN [Suspect]
     Active Substance: CLARITHROMYCIN
     Indication: Infected bite
  3. GARDASIL 9 [Suspect]
     Active Substance: HUMAN PAPILLOMAVIRUS TYPE 11 L1 CAPSID PROTEIN ANTIGEN\HUMAN PAPILLOMAVIRUS TYPE 16 L1 CAPSID PROTEI
     Indication: Ill-defined disorder
     Dosage: UNK
     Route: 051
     Dates: start: 20200908, end: 20200908

REACTIONS (14)
  - Abdominal pain [Recovered/Resolved with Sequelae]
  - Paraesthesia [Not Recovered/Not Resolved]
  - Palpitations [Not Recovered/Not Resolved]
  - Menstruation irregular [Recovered/Resolved]
  - Postural orthostatic tachycardia syndrome [Not Recovered/Not Resolved]
  - Panic attack [Not Recovered/Not Resolved]
  - Cognitive disorder [Not Recovered/Not Resolved]
  - Anxiety [Unknown]
  - Gastrooesophageal reflux disease [Unknown]
  - Head discomfort [Unknown]
  - Ear discomfort [Unknown]
  - Eustachian tube dysfunction [Unknown]
  - Menstruation delayed [Unknown]
  - Intermenstrual bleeding [Unknown]

NARRATIVE: CASE EVENT DATE: 20200913
